FAERS Safety Report 16854706 (Version 3)
Quarter: 2019Q4

REPORT INFORMATION
  Report Type: Report from Study
  Country: US (occurrence: US)
  Receive Date: 20190926
  Receipt Date: 20191217
  Transmission Date: 20200122
  Serious: Yes (Hospitalization)
  Sender: FDA-Public Use
  Company Number: US-ROCHE-2420530

PATIENT
  Age: 67 Year
  Sex: Female
  Weight: 101.13 kg

DRUGS (10)
  1. HYDROCHLOROTHIAZIDE. [Concomitant]
     Active Substance: HYDROCHLOROTHIAZIDE
     Route: 065
     Dates: start: 2004
  2. GEMCITABINE. [Suspect]
     Active Substance: GEMCITABINE
     Route: 042
     Dates: start: 20190918
  3. ATEZOLIZUMAB. [Suspect]
     Active Substance: ATEZOLIZUMAB
     Indication: CHOLANGIOCARCINOMA
     Dosage: LAST DOSE PRIOR TO EVENT ONSET WAS ON 10/SEP/2019
     Route: 042
     Dates: start: 20190910
  4. VITAMIN D3 [Concomitant]
     Active Substance: CHOLECALCIFEROL
     Route: 065
     Dates: start: 2014
  5. CISPLATIN. [Suspect]
     Active Substance: CISPLATIN
     Indication: PRODUCT USED FOR UNKNOWN INDICATION
     Dosage: LAST DOSE PRIOR TO EVENT ONSET WAS ON 11/SEP/2019
     Route: 042
     Dates: start: 20190911
  6. GEMCITABINE. [Suspect]
     Active Substance: GEMCITABINE
     Indication: PRODUCT USED FOR UNKNOWN INDICATION
     Dosage: LAST DOSE PRIOR TO EVENT ONSET WAS ON 11/SEP/2019
     Route: 042
     Dates: start: 20190911, end: 20190917
  7. CIPROFLOXACIN. [Concomitant]
     Active Substance: CIPROFLOXACIN
     Route: 065
     Dates: start: 20190819, end: 20190826
  8. METOPROLOL. [Concomitant]
     Active Substance: METOPROLOL
     Route: 065
     Dates: start: 2004
  9. PEGPH20 [Suspect]
     Active Substance: PEGVORHYALURONIDASE ALFA
     Indication: CHOLANGIOCARCINOMA
     Dosage: LAST DOSE PRIOR TO EVENT ONSET WAS ON 13/SEP/2019
     Route: 042
     Dates: start: 20190910, end: 20190917
  10. POTASSIUM [Concomitant]
     Active Substance: POTASSIUM
     Route: 065
     Dates: start: 2014

REACTIONS (2)
  - Palpitations [Recovered/Resolved]
  - Rash [Recovered/Resolved]

NARRATIVE: CASE EVENT DATE: 20190914
